FAERS Safety Report 5449052-0 (Version None)
Quarter: 2007Q3

REPORT INFORMATION
  Report Type: 
  Country: None (occurrence: None)
  Receive Date: 20070911
  Receipt Date: 20070903
  Transmission Date: 20080115
  Serious: Yes (Disabling)
  Sender: FDA-Public Use
  Company Number: FR-JNJFOC-20070602711

PATIENT
  Age: 64 Year
  Sex: Female

DRUGS (7)
  1. CAELYX [Suspect]
     Dosage: THIS WAS THE THIRD CYCLE OF THERAPY
     Route: 042
  2. CAELYX [Suspect]
     Indication: UTERINE NEOPLASM
     Route: 042
  3. BECILAN [Concomitant]
     Route: 048
  4. METEOXANE [Concomitant]
     Route: 065
  5. CODOLIPRANE [Concomitant]
     Route: 048
  6. NEXIUM [Concomitant]
     Route: 048
  7. DESLORATADINE [Concomitant]
     Route: 048

REACTIONS (4)
  - MOUTH ULCERATION [None]
  - RASH [None]
  - RASH ERYTHEMATOUS [None]
  - TOXIC SKIN ERUPTION [None]
